FAERS Safety Report 9917016 (Version 2)
Quarter: 2014Q2

REPORT INFORMATION
  Report Type: Spontaneous
  Country: US (occurrence: US)
  Receive Date: 20140221
  Receipt Date: 20140424
  Transmission Date: 20141212
  Serious: Yes (Hospitalization)
  Sender: FDA-Public Use
  Company Number: US-GLAXOSMITHKLINE-A1060828A

PATIENT
  Sex: Female

DRUGS (4)
  1. REQUIP [Suspect]
     Indication: RESTLESS LEGS SYNDROME
     Dosage: 4MG FOUR TIMES PER DAY
     Route: 048
  2. GABAPENTIN [Concomitant]
  3. KLONOPIN [Concomitant]
  4. OXYBUTYNIN [Concomitant]

REACTIONS (4)
  - Staphylococcal infection [Unknown]
  - Toe amputation [Unknown]
  - Pain in extremity [Unknown]
  - Peripheral swelling [Unknown]
